FAERS Safety Report 20145294 (Version 1)
Quarter: 2021Q4

REPORT INFORMATION
  Report Type: Spontaneous
  Country: CN (occurrence: None)
  Receive Date: 20211203
  Receipt Date: 20211203
  Transmission Date: 20220303
  Serious: Yes (Hospitalization, Other)
  Sender: FDA-Public Use
  Company Number: 2021A848511

PATIENT
  Age: 44 Year
  Sex: Female
  Weight: 52 kg

DRUGS (6)
  1. TAGRISSO [Suspect]
     Active Substance: OSIMERTINIB
     Indication: Neoplasm
     Route: 048
     Dates: start: 20210812, end: 20211110
  2. TAGRISSO [Suspect]
     Active Substance: OSIMERTINIB
     Indication: Neoplasm
     Dosage: 80MG Q2D PO
     Route: 048
     Dates: start: 20211110, end: 20211125
  3. GRANULOCYTE COLONY-STIMULATING FACTOR NOS [Concomitant]
     Active Substance: GRANULOCYTE COLONY-STIMULATING FACTOR NOS
     Route: 065
     Dates: start: 20211102, end: 20211103
  4. SAPONIN [Concomitant]
     Dosage: 9 PILLS PO TID
     Route: 048
  5. MAGNESIUM ISOGLYCYRRHIZINATE [Concomitant]
     Active Substance: MAGNESIUM ISOGLYCYRRHIZINATE
     Indication: Liver function test abnormal
     Dosage: 150MG IVGTT QD
     Route: 065
     Dates: start: 20211102, end: 20211115
  6. RECOMBINANT HUMAN INTERLEUKIN-II [Concomitant]
     Indication: Platelet function test abnormal
     Dosage: 2MG IH QD
     Route: 065
     Dates: start: 20211104, end: 20211106

REACTIONS (2)
  - Myelosuppression [Recovering/Resolving]
  - Liver injury [Recovering/Resolving]

NARRATIVE: CASE EVENT DATE: 20211103
